FAERS Safety Report 8214609-0 (Version None)
Quarter: 2012Q1

REPORT INFORMATION
  Report Type: 
  Country: None (occurrence: None)
  Receive Date: 20120228
  Receipt Date: 20110314
  Transmission Date: 20120608
  Serious: Yes (Other)
  Sender: FDA-Public Use
  Company Number: RB-24034-2011

PATIENT
  Sex: Male

DRUGS (4)
  1. SUBUTEX [Suspect]
     Indication: DRUG DEPENDENCE
     Dosage: 8 MG TRANSMAMMARY
     Route: 063
     Dates: start: 20110201
  2. SUBUTEX [Suspect]
     Indication: DRUG DEPENDENCE
     Dosage: (8 TO 16 MILLIGRAM TRANSPLACENTAL)
     Route: 064
     Dates: start: 20110201
  3. SUBUTEX [Suspect]
     Indication: DRUG DEPENDENCE
     Dosage: (8 TO 16 MILLIGRAM TRANSPLACENTAL)
     Route: 064
     Dates: start: 20100629, end: 20110201
  4. SUBOXONE [Suspect]
     Indication: DRUG DEPENDENCE
     Dosage: (4 TO 8 MILLIGRAMS DAILY TRANSPLACENTAL)
     Route: 064
     Dates: start: 20100401, end: 20100628

REACTIONS (1)
  - DRUG WITHDRAWAL SYNDROME NEONATAL [None]
